FAERS Safety Report 8283687-5 (Version None)
Quarter: 2012Q2

REPORT INFORMATION
  Report Type: 
  Country: None (occurrence: None)
  Receive Date: 20120413
  Receipt Date: 20120409
  Transmission Date: 20120825
  Serious: Yes (Other)
  Sender: FDA-Public Use
  Company Number: US-PFIZER INC-2012081264

PATIENT
  Sex: Male
  Weight: 78.005 kg

DRUGS (4)
  1. VIAGRA [Suspect]
     Dosage: 100 MG, AS NEEDED
     Route: 048
  2. VIAGRA [Suspect]
     Dosage: 150 MG (100MG+50MG), AS NEEDED
     Route: 048
     Dates: end: 20090101
  3. VIAGRA [Suspect]
     Indication: ERECTILE DYSFUNCTION
     Dosage: 50 MG, AS NEEDED
     Route: 048
  4. KLONOPIN [Concomitant]
     Indication: ANXIETY
     Dosage: UNK

REACTIONS (3)
  - SURGERY [None]
  - ASTHENIA [None]
  - DRUG EFFECT DECREASED [None]
